FAERS Safety Report 5799052-6 (Version None)
Quarter: 2008Q3

REPORT INFORMATION
  Report Type: 
  Country: None (occurrence: None)
  Receive Date: 20080702
  Receipt Date: 20080620
  Transmission Date: 20090109
  Serious: Yes (Hospitalization, Other)
  Sender: FDA-Public Use
  Company Number: JP-PFIZER INC-2008015821

PATIENT
  Sex: Female
  Weight: 71 kg

DRUGS (15)
  1. GABAPEN [Suspect]
     Indication: PARTIAL SEIZURES
     Route: 048
     Dates: start: 20080118, end: 20080218
  2. SPLENDIL [Suspect]
     Indication: HYPERTENSION
     Route: 048
  3. ALTAT [Suspect]
     Indication: GASTRIC ULCER
     Route: 048
  4. DEPAKENE [Suspect]
     Indication: EPILEPSY
     Route: 048
     Dates: end: 20080218
  5. DEPAKENE [Suspect]
     Indication: COMPLEX PARTIAL SEIZURES
  6. LONGES [Suspect]
     Indication: HYPERTENSION
     Route: 048
  7. WYTENS [Concomitant]
     Route: 048
  8. ALOSENN [Concomitant]
     Route: 048
  9. ABILIT [Concomitant]
     Route: 048
  10. CEREKINON [Concomitant]
     Route: 048
  11. CEROCRAL [Concomitant]
     Route: 048
  12. GASCON [Concomitant]
     Route: 048
  13. LOXONIN [Concomitant]
     Route: 048
  14. SELBEX [Concomitant]
     Route: 048
  15. SHINLUCK [Concomitant]

REACTIONS (5)
  - ANURIA [None]
  - BLOOD CREATINE PHOSPHOKINASE INCREASED [None]
  - BLOOD CREATININE INCREASED [None]
  - MYOGLOBIN BLOOD INCREASED [None]
  - RHABDOMYOLYSIS [None]
